FAERS Safety Report 4267260-1 (Version None)
Quarter: 2004Q1

REPORT INFORMATION
  Report Type: 
  Country: None (occurrence: None)
  Receive Date: 20040107
  Receipt Date: 20031230
  Transmission Date: 20041129
  Serious: Yes (Other)
  Sender: FDA-Public Use
  Company Number: GBWYE487431DEC03

PATIENT
  Age: 74 Year

DRUGS (2)
  1. EFFEXOR XR [Suspect]
  2. LITHIUM CARBONATE [Concomitant]

REACTIONS (2)
  - MANIA [None]
  - PARKINSONISM [None]
